APPROVED DRUG PRODUCT: QUININE SULFATE
Active Ingredient: QUININE SULFATE
Strength: 324MG
Dosage Form/Route: CAPSULE;ORAL
Application: A204372 | Product #001 | TE Code: AB
Applicant: NOVAST LABORATORIES LTD
Approved: Jul 22, 2015 | RLD: No | RS: Yes | Type: RX